FAERS Safety Report 8132413 (Version 2)
Quarter: 2012Q4

REPORT INFORMATION
  Report Type: Report from Study
  Country: US (occurrence: US)
  Receive Date: 20110913
  Receipt Date: 20121106
  Transmission Date: 20130627
  Serious: Yes (Hospitalization)
  Sender: FDA-Public Use
  Company Number: US-JNJFOC-20110902392

PATIENT
  Sex: Male
  Weight: 30.1 kg

DRUGS (11)
  1. REMICADE [Suspect]
     Indication: INFLAMMATORY BOWEL DISEASE
     Route: 042
     Dates: start: 20100921
  2. REMICADE [Suspect]
     Indication: INFLAMMATORY BOWEL DISEASE
     Route: 042
     Dates: start: 20101110
  3. REMICADE [Suspect]
     Indication: INFLAMMATORY BOWEL DISEASE
     Route: 042
     Dates: start: 20060720
  4. REMICADE [Suspect]
     Indication: INFLAMMATORY BOWEL DISEASE
     Route: 042
     Dates: start: 20110522
  5. BUDESONIDE [Concomitant]
  6. PROBIOTICS [Concomitant]
  7. SLOW RELEASE IRON [Concomitant]
  8. CALCIUM 600 AND VITAMIN D [Concomitant]
  9. FISH OIL [Concomitant]
  10. NEXIUM [Concomitant]
  11. MULTIVITAMINS [Concomitant]

REACTIONS (1)
  - Failure to thrive [Not Recovered/Not Resolved]
